FAERS Safety Report 11508701 (Version 1)
Quarter: 2015Q3

REPORT INFORMATION
  Report Type: Spontaneous
  Country: US (occurrence: US)
  Receive Date: 20150903
  Receipt Date: 20150903
  Transmission Date: 20151125
  Serious: No
  Sender: FDA-Public Use
  Company Number: US-ELI_LILLY_AND_COMPANY-US200909005123

PATIENT
  Age: 38 Year
  Sex: Female

DRUGS (9)
  1. PRENATAL VITAMINS                  /01549301/ [Concomitant]
     Active Substance: VITAMINS
  2. LANTUS [Concomitant]
     Active Substance: INSULIN GLARGINE
     Dosage: 50 U, EACH EVENING
  3. LABETALOL [Concomitant]
     Active Substance: LABETALOL\LABETALOL HYDROCHLORIDE
     Dosage: 200 MG, 2/D
  4. LEVOTHYROXINE                      /00068001/ [Concomitant]
     Dosage: 112 UG, DAILY (1/D)
  5. ALBUTEROL. [Concomitant]
     Active Substance: ALBUTEROL
  6. HUMALOG [Suspect]
     Active Substance: INSULIN LISPRO
     Dosage: UNK, AS NEEDED
     Dates: start: 2009
  7. HUMALOG [Suspect]
     Active Substance: INSULIN LISPRO
     Dosage: 160 U, DAILY (1/D)
     Dates: start: 20090526
  8. METFORMIN [Concomitant]
     Active Substance: METFORMIN HYDROCHLORIDE
     Dosage: 500 MG, 4/D
  9. LANTUS [Concomitant]
     Active Substance: INSULIN GLARGINE
     Dosage: 50 U, EACH MORNING

REACTIONS (3)
  - Exposure during pregnancy [Not Recovered/Not Resolved]
  - Pregnancy with advanced maternal age [Not Recovered/Not Resolved]
  - Insulin resistance [Unknown]

NARRATIVE: CASE EVENT DATE: 2009
